FAERS Safety Report 17633379 (Version 1)
Quarter: 2020Q2

REPORT INFORMATION
  Report Type: Report from Study
  Country: US (occurrence: US)
  Receive Date: 20200406
  Receipt Date: 20200406
  Transmission Date: 20200713
  Serious: Yes (Death, Other)
  Sender: FDA-Public Use
  Company Number: US-MYLANLABS-2020M1022602

PATIENT
  Age: 78 Year
  Sex: Male
  Weight: 65.21 kg

DRUGS (4)
  1. MORPHINE SULPHATE [Concomitant]
     Active Substance: MORPHINE SULFATE
     Indication: DEMENTIA
     Dosage: 10 MG (0.5 ML) EVERY 1 HOUR AS NEEDED
  2. LEVSIN [Concomitant]
     Active Substance: HYOSCYAMINE SULFATE
     Indication: BEHAVIOUR DISORDER
     Dosage: 0.125 MG TAKEN EVERY 4 HOURS AS NEEDED
     Route: 048
  3. CLOZAPINE. [Suspect]
     Active Substance: CLOZAPINE
     Indication: BEHAVIOUR DISORDER
  4. CLOZAPINE. [Suspect]
     Active Substance: CLOZAPINE
     Indication: DEMENTIA
     Dosage: 25 MILLIGRAM, QD, AT BEDTIME
     Route: 048
     Dates: end: 20191220

REACTIONS (3)
  - Off label use [Unknown]
  - Cardio-respiratory arrest [Fatal]
  - Hospice care [Unknown]

NARRATIVE: CASE EVENT DATE: 20200102
